FAERS Safety Report 8098302 (Version 6)
Quarter: 2013Q3

REPORT INFORMATION
  Report Type: Spontaneous
  Country: US (occurrence: US)
  Receive Date: 20110819
  Receipt Date: 20130822
  Transmission Date: 20140515
  Serious: Yes (Hospitalization)
  Sender: FDA-Public Use
  Company Number: US-GLAXOSMITHKLINE-A0915688A

PATIENT
  Age: 59 Year
  Sex: Male
  Weight: 97.7 kg

DRUGS (6)
  1. AVANDIA [Suspect]
     Indication: DIABETES MELLITUS
     Dosage: 4MG TWICE PER DAY
     Route: 048
     Dates: start: 200403, end: 200712
  2. GLUCOPHAGE [Concomitant]
  3. GLYBURIDE [Concomitant]
  4. COZAAR [Concomitant]
  5. ACCUPRIL [Concomitant]
  6. GLYNASE [Concomitant]

REACTIONS (8)
  - Atrial fibrillation [Not Recovered/Not Resolved]
  - Cardiac failure congestive [Unknown]
  - Macular oedema [Unknown]
  - Amnesia [Unknown]
  - Gait disturbance [Unknown]
  - Cardiomyopathy [Unknown]
  - Cardiac disorder [Unknown]
  - Cardiovascular disorder [Unknown]
